FAERS Safety Report 13102235 (Version 2)
Quarter: 2017Q1

REPORT INFORMATION
  Report Type: Spontaneous
  Country: GB (occurrence: GB)
  Receive Date: 20170110
  Receipt Date: 20170202
  Transmission Date: 20170428
  Serious: Yes (Other)
  Sender: FDA-Public Use
  Company Number: GB-PFIZER INC-2016605367

PATIENT
  Age: 28 Year
  Sex: Male

DRUGS (1)
  1. EFEXOR XL [Suspect]
     Active Substance: VENLAFAXINE HYDROCHLORIDE
     Indication: POST-TRAUMATIC STRESS DISORDER
     Dosage: 150 MG, 2X/DAY
     Dates: start: 1998, end: 2008

REACTIONS (5)
  - Withdrawal syndrome [Unknown]
  - Nerve injury [Unknown]
  - Neuropathy peripheral [Unknown]
  - Suicide attempt [Unknown]
  - Pain [Unknown]
